FAERS Safety Report 5627728-X (Version None)
Quarter: 2008Q1

REPORT INFORMATION
  Report Type: 
  Country: None (occurrence: None)
  Receive Date: 20080215
  Receipt Date: 20080205
  Transmission Date: 20080703
  Serious: Yes (Other)
  Sender: FDA-Public Use
  Company Number: CH-ABBOTT-08P-151-0437179-00

PATIENT
  Age: 43 Year
  Sex: Male

DRUGS (2)
  1. ADALIMUMAB [Suspect]
     Indication: PSORIASIS
     Route: 058
  2. ADALIMUMAB [Suspect]
     Indication: PSORIATIC ARTHROPATHY

REACTIONS (1)
  - ALOPECIA UNIVERSALIS [None]
